FAERS Safety Report 21907716 (Version 1)
Quarter: 2023Q1

REPORT INFORMATION
  Report Type: Spontaneous
  Country: GB (occurrence: GB)
  Receive Date: 20230125
  Receipt Date: 20230125
  Transmission Date: 20230417
  Serious: Yes (Other)
  Sender: FDA-Public Use
  Company Number: None

PATIENT
  Age: 17 Year
  Sex: Female
  Weight: 53 kg

DRUGS (5)
  1. AMOXICILLIN [Suspect]
     Active Substance: AMOXICILLIN
     Indication: Ill-defined disorder
     Dosage: ONE TO BE TAKEN THREE TIMES A DAY FOR 5 DAYS, T...
     Dates: start: 20221230, end: 20230104
  2. AMOXICILLIN [Suspect]
     Active Substance: AMOXICILLIN
     Dates: start: 20230105
  3. ADAPALENE [Concomitant]
     Active Substance: ADAPALENE
     Indication: Ill-defined disorder
     Dosage: TO BE APPLIED TO THE AFFECTED AREA(S) ONCE A DA...
     Dates: start: 20210823
  4. CLARITHROMYCIN [Concomitant]
     Active Substance: CLARITHROMYCIN
     Indication: Ill-defined disorder
     Dosage: ONE TABLET TO BE TAKEN TWICE A DAY
     Dates: start: 20230105
  5. TETRALYSAL [Concomitant]
     Indication: Ill-defined disorder
     Dosage: TAKE ONE EACH DAY AS PER SPIRE
     Dates: start: 20210823

REACTIONS (4)
  - Dysphagia [Recovered/Resolved]
  - Aphasia [Recovered/Resolved]
  - Peripheral swelling [Recovered/Resolved]
  - Pruritus [Recovered/Resolved]

NARRATIVE: CASE EVENT DATE: 20230105
